FAERS Safety Report 13483752 (Version 1)
Quarter: 2017Q2

REPORT INFORMATION
  Report Type: Spontaneous
  Country: GB (occurrence: GB)
  Receive Date: 20170426
  Receipt Date: 20170426
  Transmission Date: 20170830
  Serious: Yes (Hospitalization)
  Sender: FDA-Public Use
  Company Number: GB-TEVA-760836ACC

PATIENT
  Age: 75 Year
  Sex: Male

DRUGS (7)
  1. CALCIPOTRIOL [Concomitant]
     Active Substance: CALCIPOTRIENE
     Dosage: TO THE AFFECTED AREAS.
  2. OILATUM CREAM [Concomitant]
  3. BETAMETHASONE DIPROPIONATE. [Concomitant]
     Active Substance: BETAMETHASONE DIPROPIONATE
     Dosage: 1 DOSAGE FORMS DAILY;
  4. NAPROXEN. [Suspect]
     Active Substance: NAPROXEN
     Indication: SCIATICA
     Dosage: 1000 MILLIGRAM DAILY;
     Route: 048
  5. ALPHOSYL 2 IN 1 [Concomitant]
     Dosage: ONCE A MONTH.
  6. IPRATROPIUM BROMIDE. [Concomitant]
     Active Substance: IPRATROPIUM BROMIDE
     Dosage: TWICE A DAY.
  7. OILATUM [Concomitant]

REACTIONS (2)
  - Gastrointestinal haemorrhage [Recovered/Resolved]
  - Faeces discoloured [Unknown]

NARRATIVE: CASE EVENT DATE: 20170320
